FAERS Safety Report 6539814-0 (Version None)
Quarter: 2010Q1

REPORT INFORMATION
  Report Type: 
  Country: None (occurrence: None)
  Receive Date: 20100115
  Receipt Date: 20100108
  Transmission Date: 20100710
  Serious: Yes (Other)
  Sender: FDA-Public Use
  Company Number: US-PFIZER INC-2009286999

PATIENT
  Sex: Female
  Weight: 48.534 kg

DRUGS (13)
  1. LIPITOR [Suspect]
     Indication: BLOOD CHOLESTEROL INCREASED
     Dosage: 20 MG, 1X/DAY
     Route: 048
     Dates: start: 20040101, end: 20090101
  2. LOPID [Suspect]
     Indication: HYPERLIPIDAEMIA
     Dosage: 600 MG, 2X/DAY
     Dates: end: 20090101
  3. ATENOLOL [Concomitant]
     Indication: HYPERTENSION
     Dosage: 50MG, 0.5 TAB DAILY
  4. HYDROCHLOROTHIAZIDE [Concomitant]
  5. POTASSIUM [Concomitant]
  6. PRILOSEC [Concomitant]
  7. GLYBURIDE [Concomitant]
     Dosage: 5MG, 0.5 TAB TWICE DAILY
  8. PROCRIT [Concomitant]
     Dosage: UNK, WEEKLY
  9. ACETYLSALICYLIC ACID [Concomitant]
     Dosage: 81 MG, UNK
  10. PROPYLTHIOURACIL [Concomitant]
     Dosage: 50 MG, 2X/DAY
  11. TRAMADOL [Concomitant]
     Dosage: 50 MG, 3X/DAY
  12. VITAMIN C [Suspect]
  13. VITAMIN B COMPLEX CAP [Suspect]

REACTIONS (1)
  - HEPATIC CIRRHOSIS [None]
